FAERS Safety Report 11436405 (Version 1)
Quarter: 2015Q3

REPORT INFORMATION
  Report Type: Spontaneous
  Country: US (occurrence: US)
  Receive Date: 20150821
  Receipt Date: 20150821
  Transmission Date: 20151125
  Serious: No
  Sender: FDA-Public Use
  Company Number: US-ELI_LILLY_AND_COMPANY-US201405004462

PATIENT
  Sex: Male

DRUGS (2)
  1. NORCO [Concomitant]
     Active Substance: ACETAMINOPHEN\HYDROCODONE BITARTRATE
  2. CIALIS [Suspect]
     Active Substance: TADALAFIL
     Indication: URETHRAL DISORDER
     Dosage: 5 MG, EACH MORNING
     Route: 065

REACTIONS (5)
  - Confusional state [Unknown]
  - Dysuria [Unknown]
  - Micturition urgency [Unknown]
  - Off label use [Unknown]
  - Haematuria [Unknown]
